FAERS Safety Report 24049163 (Version 1)
Quarter: 2024Q3

REPORT INFORMATION
  Report Type: Spontaneous
  Country: US (occurrence: US)
  Receive Date: 20240704
  Receipt Date: 20240704
  Transmission Date: 20241017
  Serious: No
  Sender: BAUSCH AND LOMB
  Company Number: US-BAUSCH-BL-2024-010217

PATIENT
  Sex: Female

DRUGS (1)
  1. NASALCROM [Suspect]
     Active Substance: CROMOLYN SODIUM
     Indication: Product used for unknown indication
     Dosage: NASALCROM NASAL ALLERGY SYMPTOM CONTROLLER SPRAY
     Route: 045

REACTIONS (1)
  - Diarrhoea [Unknown]
